FAERS Safety Report 4344171-4 (Version None)
Quarter: 2004Q2

REPORT INFORMATION
  Report Type: 
  Country: None (occurrence: None)
  Receive Date: 20040419
  Receipt Date: 20040415
  Transmission Date: 20050107
  Serious: Yes (Life-Threatening, Hospitalization)
  Sender: FDA-Public Use
  Company Number: 2002-08-2223

PATIENT
  Age: 44 Year
  Sex: Male
  Weight: 59 kg

DRUGS (4)
  1. REBETOL [Suspect]
     Indication: HEPATITIS C
     Dosage: 800 MG QD ORAL
     Route: 048
     Dates: start: 20011218, end: 20020128
  2. INTRON A [Suspect]
     Indication: HEPATITIS C
     Dosage: 6 MU QD-TIW INTRAMUSCULAR
     Route: 030
     Dates: start: 20011218, end: 20011231
  3. INTRON A [Suspect]
     Indication: HEPATITIS C
     Dosage: 6 MU QD-TIW INTRAMUSCULAR
     Route: 030
     Dates: start: 20011218, end: 20020128
  4. INTRON A [Suspect]
     Indication: HEPATITIS C
     Dosage: 6 MU QD-TIW INTRAMUSCULAR
     Route: 030
     Dates: start: 20020101, end: 20020128

REACTIONS (4)
  - CEREBRAL HAEMORRHAGE [None]
  - HEADACHE [None]
  - LOSS OF CONSCIOUSNESS [None]
  - RESPIRATORY ARREST [None]
